FAERS Safety Report 5206530-7 (Version None)
Quarter: 2006Q4

REPORT INFORMATION
  Report Type: 
  Country: None (occurrence: None)
  Receive Date: 20061026
  Receipt Date: 20060826
  Transmission Date: 20070319
  Serious: No
  Sender: FDA-Public Use
  Company Number: 2006105407

PATIENT
  Age: 46 Year
  Sex: Female
  Weight: 59.8748 kg

DRUGS (5)
  1. LYRICA [Suspect]
     Indication: DRUG USE FOR UNKNOWN INDICATION
     Dosage: 300 MG (150 MG, 2 IN 1 D)
  2. EFFEXOR [Suspect]
     Indication: DRUG USE FOR UNKNOWN INDICATION
     Dosage: ((75 MG)
  3. TRAZODONE HCL [Suspect]
     Indication: DRUG USE FOR UNKNOWN INDICATION
  4. ZANAFLEX [Suspect]
     Indication: DRUG USE FOR UNKNOWN INDICATION
  5. VOLTAREN [Suspect]
     Indication: DRUG USE FOR UNKNOWN INDICATION

REACTIONS (2)
  - DRUG INTERACTION [None]
  - DRUG SCREEN POSITIVE [None]
